FAERS Safety Report 23918226 (Version 2)
Quarter: 2024Q2

REPORT INFORMATION
  Report Type: Spontaneous
  Country: US (occurrence: US)
  Receive Date: 20240530
  Receipt Date: 20240624
  Transmission Date: 20240716
  Serious: No
  Sender: FDA-Public Use
  Company Number: US-TEVA-VS-3200025

PATIENT
  Sex: Female

DRUGS (2)
  1. DEXTROAMPHETAMINE SULFATE [Suspect]
     Active Substance: DEXTROAMPHETAMINE SULFATE
     Indication: Product used for unknown indication
     Route: 065
  2. DEXTROAMPHETAMINE SULFATE [Suspect]
     Active Substance: DEXTROAMPHETAMINE SULFATE
     Indication: Product used for unknown indication
     Dosage: CAPSULES - EXTENDED / SUSTAINED RELEASE
     Route: 065

REACTIONS (5)
  - Mental fatigue [Unknown]
  - Irritability [Unknown]
  - Impatience [Unknown]
  - Drug ineffective [Unknown]
  - Product coating issue [Unknown]
